FAERS Safety Report 20121217 (Version 87)
Quarter: 2025Q1

REPORT INFORMATION
  Report Type: Report from Study
  Country: US (occurrence: US)
  Receive Date: 20211127
  Receipt Date: 20250320
  Transmission Date: 20250408
  Serious: Yes (Hospitalization, Other)
  Sender: TAKEDA
  Company Number: US-PAREXEL-2021-KAM-US003639

PATIENT
  Age: 55 Year
  Sex: Female
  Weight: 62 kg

DRUGS (74)
  1. GLASSIA [Suspect]
     Active Substance: .ALPHA.1-PROTEINASE INHIBITOR HUMAN
     Indication: Alpha-1 antitrypsin deficiency
     Dosage: 60 MILLIGRAM/KILOGRAM, 1/WEEK
  2. GLASSIA [Suspect]
     Active Substance: .ALPHA.1-PROTEINASE INHIBITOR HUMAN
  3. RIFAMPIN [Suspect]
     Active Substance: RIFAMPIN
     Indication: Product used for unknown indication
  4. VORICONAZOLE [Suspect]
     Active Substance: VORICONAZOLE
     Indication: Product used for unknown indication
  5. ITRACONAZOLE [Suspect]
     Active Substance: ITRACONAZOLE
     Indication: Product used for unknown indication
  6. ETHAMBUTOL HYDROCHLORIDE [Suspect]
     Active Substance: ETHAMBUTOL HYDROCHLORIDE
     Indication: Mycobacterium avium complex infection
  7. NUZYRA [Suspect]
     Active Substance: OMADACYCLINE
     Indication: Mycobacterium avium complex infection
  8. EPINEPHRINE [Concomitant]
     Active Substance: EPINEPHRINE
  9. IBUPROFEN [Concomitant]
     Active Substance: IBUPROFEN
  10. XOPENEX [Concomitant]
     Active Substance: LEVALBUTEROL HYDROCHLORIDE
  11. TUMS ULTRA [Concomitant]
     Active Substance: CALCIUM CARBONATE
  12. SUMATRIPTAN SUCCINATE [Concomitant]
     Active Substance: SUMATRIPTAN SUCCINATE
  13. CYMBALTA [Concomitant]
     Active Substance: DULOXETINE HYDROCHLORIDE
  14. TIZANIDINE HYDROCHLORIDE [Concomitant]
     Active Substance: TIZANIDINE HYDROCHLORIDE
  15. FIORICET [Concomitant]
     Active Substance: ACETAMINOPHEN\BUTALBITAL\CAFFEINE
  16. BACLOFEN [Concomitant]
     Active Substance: BACLOFEN
  17. POTASSIUM CHLORIDE [Concomitant]
     Active Substance: POTASSIUM CHLORIDE
  18. HEPARIN [Concomitant]
     Active Substance: HEPARIN SODIUM
  19. SODIUM CHLORIDE [Concomitant]
     Active Substance: SODIUM CHLORIDE
  20. CYANOCOBALAMIN [Concomitant]
     Active Substance: CYANOCOBALAMIN
  21. LORAZEPAM [Concomitant]
     Active Substance: LORAZEPAM
  22. LASIX [Concomitant]
     Active Substance: FUROSEMIDE
  23. ALBUTEROL SULFATE [Concomitant]
     Active Substance: ALBUTEROL SULFATE
  24. PROTONIX [Concomitant]
     Active Substance: PANTOPRAZOLE SODIUM
  25. PROMETHAZINE HYDROCHLORIDE [Concomitant]
     Active Substance: PROMETHAZINE HYDROCHLORIDE
  26. TRAMADOL HCL [Concomitant]
     Active Substance: TRAMADOL HYDROCHLORIDE
  27. VITAMIN D3 [Concomitant]
     Active Substance: CHOLECALCIFEROL
  28. SCOPOLAMINE [Concomitant]
     Active Substance: SCOPOLAMINE
  29. JANSSEN COVID-19 VACCINE [Concomitant]
     Active Substance: AD26.COV2.S
  30. Lmx [Concomitant]
  31. DIPHENHYDRAMINE HYDROCHLORIDE [Concomitant]
     Active Substance: DIPHENHYDRAMINE HYDROCHLORIDE
  32. CYPROHEPTADINE HYDROCHLORIDE [Concomitant]
     Active Substance: CYPROHEPTADINE HYDROCHLORIDE
  33. TRAZODONE HCL [Concomitant]
     Active Substance: TRAZODONE HYDROCHLORIDE
  34. AMLODIPINE BESYLATE [Concomitant]
     Active Substance: AMLODIPINE BESYLATE
  35. Ezfe [Concomitant]
  36. HYDROXYZINE HYDROCHLORIDE [Concomitant]
     Active Substance: HYDROXYZINE HYDROCHLORIDE
  37. AZITHROMYCIN [Concomitant]
     Active Substance: AZITHROMYCIN
  38. TRIAMCINOLONE ACETONIDE [Concomitant]
     Active Substance: TRIAMCINOLONE ACETONIDE
  39. ZOFRAN [Concomitant]
     Active Substance: ONDANSETRON HYDROCHLORIDE
  40. PROPRANOLOL HYDROCHLORIDE [Concomitant]
     Active Substance: PROPRANOLOL HYDROCHLORIDE
  41. DOCUSATE SODIUM\SENNOSIDES A AND B [Concomitant]
     Active Substance: DOCUSATE SODIUM\SENNOSIDES A AND B
  42. Covid-19 vaccine [Concomitant]
  43. PREDNISONE [Concomitant]
     Active Substance: PREDNISONE
  44. FLUOXETINE [Concomitant]
     Active Substance: FLUOXETINE HYDROCHLORIDE
  45. PHENERGAN [Concomitant]
     Active Substance: PROMETHAZINE HYDROCHLORIDE
  46. TRULANCE [Concomitant]
     Active Substance: PLECANATIDE
  47. NINJACOF [Concomitant]
     Active Substance: CHLOPHEDIANOL\PYRILAMINE MALEATE
  48. ULTRAM [Concomitant]
     Active Substance: TRAMADOL HYDROCHLORIDE
  49. Janssens tee [Concomitant]
  50. ACYCLOVIR [Concomitant]
     Active Substance: ACYCLOVIR
  51. FERROUS SULFATE [Concomitant]
     Active Substance: FERROUS SULFATE
  52. VITAMIN B6 [Concomitant]
     Active Substance: PYRIDOXINE HYDROCHLORIDE
  53. BUSPIRONE HCL [Concomitant]
     Active Substance: BUSPIRONE HYDROCHLORIDE
  54. PREGABALIN [Concomitant]
     Active Substance: PREGABALIN
  55. LEVALBUTEROL HYDROCHLORIDE [Concomitant]
     Active Substance: LEVALBUTEROL HYDROCHLORIDE
  56. TOPIRAMATE [Concomitant]
     Active Substance: TOPIRAMATE
  57. ALBUTEROL SULFATE [Concomitant]
     Active Substance: ALBUTEROL SULFATE
  58. ZEMAIRA [Concomitant]
     Active Substance: .ALPHA.1-PROTEINASE INHIBITOR HUMAN
  59. NYSTATIN [Concomitant]
     Active Substance: NYSTATIN
  60. MOXIFLOXACIN [Concomitant]
     Active Substance: MOXIFLOXACIN
  61. LEVOFLOXACIN [Concomitant]
     Active Substance: LEVOFLOXACIN
  62. FLUCONAZOLE [Concomitant]
     Active Substance: FLUCONAZOLE
  63. DIFICID [Concomitant]
     Active Substance: FIDAXOMICIN
  64. LURASIDONE [Concomitant]
     Active Substance: LURASIDONE
  65. LURASIDONE HYDROCHLORIDE [Concomitant]
     Active Substance: LURASIDONE HYDROCHLORIDE
  66. REXULTI [Concomitant]
     Active Substance: BREXPIPRAZOLE
  67. AMIKACIN SULFATE [Concomitant]
     Active Substance: AMIKACIN SULFATE
  68. SENNOSIDES [Concomitant]
     Active Substance: SENNOSIDES
  69. BUDESONIDE [Concomitant]
     Active Substance: BUDESONIDE
  70. DOXYCYCLINE [Concomitant]
     Active Substance: DOXYCYCLINE
  71. CODEINE PHOSPHATE\GUAIFENESIN [Concomitant]
     Active Substance: CODEINE PHOSPHATE\GUAIFENESIN
  72. Lyta [Concomitant]
  73. GUAIFENESIN [Concomitant]
     Active Substance: GUAIFENESIN
  74. ONDANSETRON HYDROCHLORIDE [Concomitant]
     Active Substance: ONDANSETRON HYDROCHLORIDE

REACTIONS (62)
  - Mycobacterial infection [Not Recovered/Not Resolved]
  - Haemoptysis [Unknown]
  - COVID-19 [Unknown]
  - Arteriovenous malformation [Not Recovered/Not Resolved]
  - Cardiac failure congestive [Unknown]
  - Aspergillus infection [Unknown]
  - Respiratory tract infection [Not Recovered/Not Resolved]
  - Pyrexia [Unknown]
  - Lower respiratory tract infection [Not Recovered/Not Resolved]
  - Bronchitis [Unknown]
  - Pneumonia [Not Recovered/Not Resolved]
  - Scedosporium infection [Unknown]
  - Pneumonia bacterial [Not Recovered/Not Resolved]
  - Pneumonia fungal [Not Recovered/Not Resolved]
  - Pseudomonas infection [Not Recovered/Not Resolved]
  - Pneumonia pseudomonal [Unknown]
  - Nephrolithiasis [Recovered/Resolved]
  - Bowen^s disease [Unknown]
  - Respiratory tract infection fungal [Not Recovered/Not Resolved]
  - Penicillium infection [Not Recovered/Not Resolved]
  - Bronchopulmonary aspergillosis [Not Recovered/Not Resolved]
  - Clostridium difficile infection [Not Recovered/Not Resolved]
  - Mycobacterium avium complex infection [Not Recovered/Not Resolved]
  - Diarrhoea [Unknown]
  - Rhinovirus infection [Unknown]
  - Fungal infection [Not Recovered/Not Resolved]
  - Urinary tract infection [Unknown]
  - Pain in jaw [Unknown]
  - Sputum culture positive [Unknown]
  - Pain in extremity [Unknown]
  - Body temperature increased [Unknown]
  - Obstruction [Unknown]
  - Pain [Unknown]
  - Fall [Unknown]
  - Infusion site rash [Unknown]
  - Infusion site erythema [Unknown]
  - Blister [Unknown]
  - Anxiety [Unknown]
  - Productive cough [Not Recovered/Not Resolved]
  - Contrast media reaction [Unknown]
  - Streptococcal infection [Unknown]
  - Gastrointestinal infection [Not Recovered/Not Resolved]
  - Influenza [Unknown]
  - Viral infection [Recovering/Resolving]
  - Infection [Not Recovered/Not Resolved]
  - Product dose omission issue [Unknown]
  - Illness [Unknown]
  - Dermatitis contact [Unknown]
  - Chronic respiratory disease [Unknown]
  - Dysphonia [Unknown]
  - Pleural effusion [Unknown]
  - Chills [Unknown]
  - Oedema peripheral [Not Recovered/Not Resolved]
  - Chest pain [Unknown]
  - Pruritus [Unknown]
  - Vomiting [Unknown]
  - Rash [Unknown]
  - Back pain [Unknown]
  - Cough [Unknown]
  - Dyspnoea [Unknown]
  - Upper respiratory tract infection [Not Recovered/Not Resolved]
  - Nausea [Not Recovered/Not Resolved]

NARRATIVE: CASE EVENT DATE: 20221109
